FAERS Safety Report 9703426 (Version 3)
Quarter: 2015Q2

REPORT INFORMATION
  Report Type: Report from Study
  Country: GB (occurrence: GB)
  Receive Date: 20131122
  Receipt Date: 20150518
  Transmission Date: 20150821
  Serious: Yes (Hospitalization)
  Sender: FDA-Public Use
  Company Number: GB-ROCHE-1303391

PATIENT
  Age: 59 Year
  Sex: Male
  Weight: 61.8 kg

DRUGS (4)
  1. CAPECITABINE. [Suspect]
     Active Substance: CAPECITABINE
     Indication: GASTRIC CANCER
     Dosage: DATE OF MOST RECENT ADMINISTRATION PRIOR TO SAE: 25/SEP/2013?DATE OF MOST RECENT ADMINISTRATION PRIO
     Route: 048
     Dates: start: 20130905
  2. BEVACIZUMAB [Suspect]
     Active Substance: BEVACIZUMAB
     Indication: GASTRIC CANCER
     Dosage: DATE OF MOST RECENT ADMINISTRATION PRIOR TO SAE: 05/SEP/2013?DATE OF MOST RECENT ADMINISTRATION PRIO
     Route: 042
     Dates: start: 20130905
  3. EPIRUBICIN [Suspect]
     Active Substance: EPIRUBICIN
     Indication: GASTRIC CANCER
     Dosage: DATE OF MOST RECENT ADMINISTRATION PRIOR TO SAE: 05/SEP/2013?DATE OF MOST RECENT ADMINISTRATION PRIO
     Route: 042
     Dates: start: 20130905
  4. CISPLATIN. [Suspect]
     Active Substance: CISPLATIN
     Indication: GASTRIC CANCER
     Dosage: DATE OF MOST RECENT ADMINISTRATION PRIOR TO SAE: 05/SEP/2013?DATE OF MOST RECENT ADMINISTRATION PRIO
     Route: 042
     Dates: start: 20130905

REACTIONS (3)
  - Mucosal inflammation [Recovered/Resolved]
  - Oesophageal pain [Recovered/Resolved with Sequelae]
  - Dysphagia [Recovered/Resolved with Sequelae]

NARRATIVE: CASE EVENT DATE: 20130918
